FAERS Safety Report 8182875-6 (Version None)
Quarter: 2012Q1

REPORT INFORMATION
  Report Type: 
  Country: None (occurrence: None)
  Receive Date: 20120305
  Receipt Date: 20120223
  Transmission Date: 20120608
  Serious: Yes (Hospitalization)
  Sender: FDA-Public Use
  Company Number: US-BRISTOL-MYERS SQUIBB COMPANY-16410490

PATIENT
  Age: 38 Year
  Sex: Male
  Weight: 109 kg

DRUGS (1)
  1. IPILIMUMAB [Suspect]
     Indication: MALIGNANT MELANOMA
     Dosage: RECEIVED TOTAL DOSE:2201MG NO OF COURSE:02
     Route: 042
     Dates: start: 20120111

REACTIONS (2)
  - GASTROENTERITIS [None]
  - COLITIS [None]
